FAERS Safety Report 14630576 (Version 1)
Quarter: 2018Q1

REPORT INFORMATION
  Report Type: Report from Study
  Country: JP (occurrence: JP)
  Receive Date: 20180313
  Receipt Date: 20180313
  Transmission Date: 20180509
  Serious: Yes (Hospitalization)
  Sender: FDA-Public Use
  Company Number: JP-GLAXOSMITHKLINE-JP2016JPN200184

PATIENT
  Age: 79 Year
  Sex: Female
  Weight: 60 kg

DRUGS (19)
  1. BLOPRESS [Concomitant]
     Active Substance: CANDESARTAN CILEXETIL
     Indication: HYPERTENSION
     Dosage: 8 MG, 1D
     Dates: start: 200411
  2. SENNA [Concomitant]
     Active Substance: SENNA LEAF\SENNOSIDES\SENNOSIDES A AND B
     Indication: CONSTIPATION
     Dosage: 160 MG, PRN
     Dates: start: 201411
  3. MOHRUS TAPE L [Concomitant]
     Active Substance: KETOPROFEN
     Indication: INTERVERTEBRAL DISC DISORDER
     Dosage: UNK, PRN
     Dates: start: 20130518
  4. ROPINIROLE HYDROCHLORIDE. [Suspect]
     Active Substance: ROPINIROLE HYDROCHLORIDE
     Dosage: 4 MG, QD
     Route: 048
     Dates: start: 20160921
  5. ROPINIROLE HYDROCHLORIDE. [Suspect]
     Active Substance: ROPINIROLE HYDROCHLORIDE
     Dosage: 2 MG, QD
     Route: 048
     Dates: start: 20161109, end: 20161111
  6. NEODOPASOL [Concomitant]
     Active Substance: BENSERAZIDE HYDROCHLORIDE\LEVODOPA
     Dosage: UNK
     Dates: start: 20161121
  7. ROPINIROLE HYDROCHLORIDE. [Suspect]
     Active Substance: ROPINIROLE HYDROCHLORIDE
     Dosage: 8 MG, QD
     Route: 048
     Dates: start: 20161012
  8. ROPINIROLE HYDROCHLORIDE. [Suspect]
     Active Substance: ROPINIROLE HYDROCHLORIDE
     Dosage: 6 MG, QD
     Route: 048
     Dates: start: 20161026
  9. TRERIEF [Concomitant]
     Active Substance: ZONISAMIDE
     Indication: PARKINSON^S DISEASE
     Dosage: 25 MG, 1D
     Dates: start: 20151025
  10. NAUZELIN OD TABLETS [Concomitant]
     Dosage: 20 MG, 1D
     Dates: start: 20100814
  11. LANSOPRAZOLE-OD TABLETS [Concomitant]
     Indication: PROPHYLAXIS AGAINST GASTROINTESTINAL ULCER
     Dosage: 15 MG, 1D
     Dates: start: 20120513
  12. ROPINIROLE HYDROCHLORIDE. [Suspect]
     Active Substance: ROPINIROLE HYDROCHLORIDE
     Indication: PARKINSON^S DISEASE
     Dosage: 2 MG, QD
     Route: 048
     Dates: start: 20160914
  13. NEODOPASOL [Concomitant]
     Active Substance: BENSERAZIDE HYDROCHLORIDE\LEVODOPA
     Indication: PARKINSON^S DISEASE
     Dosage: 350 MG, 1D
     Dates: start: 20150304
  14. MAGMITT [Concomitant]
     Active Substance: MAGNESIUM OXIDE
     Indication: CONSTIPATION
     Dosage: 750 MG, 1D
     Dates: start: 200706
  15. ROPINIROLE HYDROCHLORIDE. [Suspect]
     Active Substance: ROPINIROLE HYDROCHLORIDE
     Dosage: 6 MG, QD
     Route: 048
     Dates: start: 20160928
  16. AMLODIPINE [Concomitant]
     Active Substance: AMLODIPINE BESYLATE
     Indication: HYPERTENSION
     Dosage: 2.5 MG, 1D
     Dates: start: 20140310
  17. ONEALFA [Concomitant]
     Active Substance: ALFACALCIDOL
     Indication: OSTEOPOROSIS
     Dosage: 1 ?G, 1D
     Dates: start: 20160930
  18. BETAHISTINE MESILATE [Concomitant]
     Active Substance: BETAHISTINE MESILATE
     Indication: DIZZINESS
     Dosage: 36 MG, 1D
     Dates: start: 20160930
  19. HYALEIN OPHTHALMIC SOLUTION [Concomitant]
     Indication: DRY EYE
     Dosage: UNK, PRN
     Dates: start: 20150105

REACTIONS (3)
  - Hallucination, visual [Recovered/Resolved]
  - Application site rash [Recovered/Resolved]
  - Delusion [Recovered/Resolved]

NARRATIVE: CASE EVENT DATE: 20160919
